FAERS Safety Report 6185045-6 (Version None)
Quarter: 2009Q2

REPORT INFORMATION
  Report Type: 
  Country: None (occurrence: None)
  Receive Date: 20090511
  Receipt Date: 20090505
  Transmission Date: 20091009
  Serious: Yes (Other)
  Sender: FDA-Public Use
  Company Number: US-JNJFOC-20090501421

PATIENT
  Age: 65 Year
  Sex: Female
  Weight: 63.5 kg

DRUGS (8)
  1. PEPCID COMPLETE [Suspect]
     Route: 048
  2. PEPCID COMPLETE [Suspect]
     Indication: ABDOMINAL PAIN UPPER
     Route: 048
  3. LEXAPRO [Concomitant]
     Indication: DEPRESSION
  4. PROCARDIA [Concomitant]
  5. PROCARDIA [Concomitant]
     Indication: HYPERTENSION
  6. LISINOPRIL [Concomitant]
     Indication: HYPERTENSION
  7. ROSUVASTATIN CALCIUM [Concomitant]
     Indication: BLOOD CHOLESTEROL INCREASED
  8. CLONIDINE [Concomitant]
     Indication: HYPERTENSION

REACTIONS (1)
  - DEPRESSION [None]
